FAERS Safety Report 7795096-3 (Version None)
Quarter: 2011Q3

REPORT INFORMATION
  Report Type: 
  Country: None (occurrence: None)
  Receive Date: 20110930
  Receipt Date: 20110915
  Transmission Date: 20111222
  Serious: No
  Sender: FDA-Public Use
  Company Number: FK201100536

PATIENT
  Age: 45 Year
  Sex: Male
  Weight: 65 kg

DRUGS (2)
  1. GLYCOPYRROLATE [Concomitant]
  2. NEOSTIGMINE METHLYSULFATE INJECTION, USP (NEOSTIGMINE METHYLYSULFATE) [Suspect]
     Indication: NEUROMUSCULAR BLOCKADE REVERSAL
     Dosage: 2.5 MG,

REACTIONS (5)
  - NON-CARDIOGENIC PULMONARY OEDEMA [None]
  - HEART RATE INCREASED [None]
  - RESTLESSNESS [None]
  - ACUTE RESPIRATORY DISTRESS SYNDROME [None]
  - IRRITABILITY [None]
